FAERS Safety Report 6893792-3 (Version None)
Quarter: 2010Q3

REPORT INFORMATION
  Report Type: 
  Country: None (occurrence: None)
  Receive Date: 20100802
  Receipt Date: 20100725
  Transmission Date: 20110219
  Serious: Yes (Hospitalization)
  Sender: FDA-Public Use
  Company Number: US-BIOGENIDEC-2010BI024188

PATIENT
  Age: 49 Year
  Sex: Female

DRUGS (2)
  1. AVONEX [Suspect]
     Indication: MULTIPLE SCLEROSIS
     Route: 030
     Dates: end: 20100620
  2. AVONEX [Suspect]
     Route: 030
     Dates: start: 20080109

REACTIONS (3)
  - ANXIETY [None]
  - COLITIS ULCERATIVE [None]
  - PANCREATITIS [None]
